FAERS Safety Report 9013414 (Version 1)
Quarter: 2013Q1

REPORT INFORMATION
  Report Type: Spontaneous
  Country: CA (occurrence: CA)
  Receive Date: 20130114
  Receipt Date: 20130114
  Transmission Date: 20140127
  Serious: Yes (Hospitalization, Other)
  Sender: FDA-Public Use
  Company Number: CA-NOVOPROD-368309

PATIENT
  Age: 62 Year
  Sex: Female

DRUGS (9)
  1. NOVORAPID [Suspect]
     Indication: PRODUCT USED FOR UNKNOWN INDICATION
     Dosage: 30 IU, UNK
     Route: 058
  2. ASPIRIN [Suspect]
     Dosage: UNK
  3. LANTUS [Suspect]
     Dosage: 30 IU, UNK
     Route: 058
  4. METFORMIN [Suspect]
     Dosage: 2000 MG, UNK
     Route: 048
  5. PLAVIX [Suspect]
     Route: 048
  6. HEPARIN SODIUM [Concomitant]
     Dosage: UNK
     Route: 042
  7. ANGIOTENSIN II ANTAGONISTS, PLAIN [Concomitant]
  8. ANTIHYPERTENSIVES [Concomitant]
  9. LIPID MODIFYING AGENTS [Concomitant]

REACTIONS (3)
  - Hepatic neoplasm [Unknown]
  - General physical health deterioration [Unknown]
  - Upper gastrointestinal haemorrhage [Unknown]
